FAERS Safety Report 20741058 (Version 2)
Quarter: 2022Q2

REPORT INFORMATION
  Report Type: Spontaneous
  Country: US (occurrence: US)
  Receive Date: 20220422
  Receipt Date: 20220502
  Transmission Date: 20220721
  Serious: Yes (Death, Hospitalization, Other)
  Sender: FDA-Public Use
  Company Number: US-CELGENE-USA-20220303013

PATIENT
  Age: 77 Year
  Sex: Female
  Weight: 90.8 kg

DRUGS (46)
  1. AZACITIDINE [Suspect]
     Active Substance: AZACITIDINE
     Indication: Acute myeloid leukaemia
     Dosage: FREQUENCY TEXT: FOR 7 DAYS WITHIN THE FIRST 9 CALENDAR D?75 MILLIGRAM
     Route: 042
     Dates: start: 20220204
  2. LEMZOPARLIMAB [Suspect]
     Active Substance: LEMZOPARLIMAB
     Indication: Acute myeloid leukaemia
     Dosage: CYCLE 1 DAYS 8 ANDAMP; 15 (1986 MG)
     Route: 042
     Dates: start: 20220211, end: 20220218
  3. LEMZOPARLIMAB [Suspect]
     Active Substance: LEMZOPARLIMAB
     Dosage: ON DAYS 1, 8, 15, AND 22 OF A 28-DAY CYCLE (1754 MG)
     Route: 042
     Dates: start: 20220307
  4. VENETOCLAX [Suspect]
     Active Substance: VENETOCLAX
     Indication: Acute myeloid leukaemia
     Dosage: DAY 1 - 100 MG , DAY 2 - 200 MG, DAY 3 AND ONWARD - 400 MG (400 MG)
     Route: 048
     Dates: start: 20220204
  5. HYDROCODONE BITARTRATE AND ACETAMINOPHEN [Concomitant]
     Active Substance: ACETAMINOPHEN\HYDROCODONE BITARTRATE
     Indication: Pain
     Dosage: 7.5-325 MG (1 AS REQUIRED)
     Route: 048
     Dates: start: 2019
  6. ALBUTEROL [Concomitant]
     Active Substance: ALBUTEROL
     Indication: Wheezing
     Dosage: FREQUENCY TEXT: AS REQUIRED
     Route: 055
     Dates: start: 2019
  7. BACLOFEN [Concomitant]
     Active Substance: BACLOFEN
     Indication: Restless legs syndrome
     Route: 048
     Dates: start: 20220129
  8. FIBERCON [Concomitant]
     Active Substance: CALCIUM POLYCARBOPHIL
     Indication: Diarrhoea
     Dosage: 625 MILLIGRAM
     Route: 048
     Dates: start: 2018
  9. FIBERCON [Concomitant]
     Active Substance: CALCIUM POLYCARBOPHIL
     Indication: Constipation
  10. GABAPENTIN [Concomitant]
     Active Substance: GABAPENTIN
     Indication: Restlessness
     Route: 048
     Dates: start: 2019
  11. GABAPENTIN [Concomitant]
     Active Substance: GABAPENTIN
     Dosage: FREQUENCY TEXT: NOT PROVIDED?EVERY EVENING (600 MG)
     Route: 048
     Dates: start: 20220129
  12. VOLTAREN [Concomitant]
     Active Substance: DICLOFENAC SODIUM
     Indication: Neck pain
     Dosage: 2 GRAM
     Route: 048
     Dates: start: 2020
  13. MUPIROCIN [Concomitant]
     Active Substance: MUPIROCIN
     Indication: Prophylaxis
     Dosage: .5 GRAM
     Route: 045
     Dates: start: 20220131
  14. MAGNESIUM SULFATE IN DEXTROSE [Concomitant]
     Active Substance: MAGNESIUM SULFATE
     Indication: Hypomagnesaemia
     Route: 042
     Dates: start: 20220201
  15. GUAIFENESIN [Concomitant]
     Active Substance: GUAIFENESIN
     Indication: Cough
     Dosage: 600 MILLIGRAM
     Route: 048
     Dates: start: 20220201
  16. DULOXETINE [Concomitant]
     Active Substance: DULOXETINE
     Indication: Anxiety
     Route: 048
     Dates: start: 20220131
  17. CHLORHEXIDINE [Concomitant]
     Active Substance: CHLORHEXIDINE
     Indication: Mucosal inflammation
     Route: 048
     Dates: start: 20220131
  18. CHLORHEXIDINE [Concomitant]
     Active Substance: CHLORHEXIDINE
     Indication: Prophylaxis
  19. LIORESAL [Concomitant]
     Active Substance: BACLOFEN
     Indication: Restless legs syndrome
     Dosage: 10 MILLIGRAM
     Route: 048
     Dates: start: 20220131
  20. LIORESAL [Concomitant]
     Active Substance: BACLOFEN
     Indication: Prophylaxis
  21. ALLOPURINOL [Concomitant]
     Active Substance: ALLOPURINOL
     Indication: Prophylaxis
     Dosage: (10 MG,1 IN 3 D)
     Route: 048
     Dates: start: 20220205
  22. DIPHENHYDRAMINE [Concomitant]
     Active Substance: DIPHENHYDRAMINE
     Indication: Premedication
     Route: 042
     Dates: start: 20220130
  23. CALCIUM CARBONATE [Concomitant]
     Active Substance: CALCIUM CARBONATE
     Indication: Dyspepsia
     Route: 048
     Dates: start: 20220201
  24. ACYCLOVIR [Concomitant]
     Active Substance: ACYCLOVIR
     Indication: Prophylaxis
     Dosage: 400 MILLIGRAM
     Route: 048
     Dates: start: 20220208
  25. SIMETHICONE (DIMETHICONE) [Concomitant]
     Active Substance: DIMETHICONE
     Indication: Dyspepsia
     Route: 048
     Dates: start: 20220201
  26. HYDROCORTISONE [Concomitant]
     Active Substance: HYDROCORTISONE
     Indication: Haemorrhoids
     Dosage: 1 PERCENT
     Route: 061
     Dates: start: 20220208
  27. LEVOFLOXACIN [Concomitant]
     Active Substance: LEVOFLOXACIN
     Indication: Infection prophylaxis
     Dosage: 500 MILLIGRAM
     Route: 061
     Dates: start: 20220208
  28. APRESOLINE HYDROCHLORIDE [Concomitant]
     Active Substance: HYDRALAZINE HYDROCHLORIDE
     Indication: Hypertension
     Dosage: 50 MILLIGRAM
     Route: 048
     Dates: start: 20220210
  29. ERAXIS [Concomitant]
     Active Substance: ANIDULAFUNGIN
     Indication: Gastrooesophageal reflux disease
     Route: 042
     Dates: start: 20220219
  30. DIPHENHYDRAMINE HYDROCHLORIDE\LIDOCAINE HYDROCHLORIDE\NYSTATIN [Concomitant]
     Active Substance: DIPHENHYDRAMINE HYDROCHLORIDE\LIDOCAINE HYDROCHLORIDE\NYSTATIN
     Indication: Mucosal inflammation
     Dosage: 15 MILLILITER
     Route: 048
     Dates: start: 20220218
  31. DIPHENHYDRAMINE HYDROCHLORIDE\LIDOCAINE HYDROCHLORIDE\NYSTATIN [Concomitant]
     Active Substance: DIPHENHYDRAMINE HYDROCHLORIDE\LIDOCAINE HYDROCHLORIDE\NYSTATIN
     Indication: Prophylaxis
  32. LOPERAMIDE [Concomitant]
     Active Substance: LOPERAMIDE
     Indication: Diarrhoea
     Dosage: 2 MILLIGRAM
     Route: 048
     Dates: start: 20220224
  33. ONDANSETRON [Concomitant]
     Active Substance: ONDANSETRON
     Indication: Nausea
     Dosage: 4 MILLIGRAM
     Route: 048
     Dates: start: 20220214
  34. ONDANSETRON [Concomitant]
     Active Substance: ONDANSETRON
     Indication: Vomiting
     Dosage: 4 MILLIGRAM
     Route: 042
     Dates: start: 20220214
  35. POTASSIUM CHLORIDE [Concomitant]
     Active Substance: POTASSIUM CHLORIDE
     Indication: Blood potassium decreased
     Dosage: DOSE; 20-40 MEQ
     Route: 048
     Dates: start: 20220216
  36. POTASSIUM CHLORIDE [Concomitant]
     Active Substance: POTASSIUM CHLORIDE
     Dosage: FREQUENCY TEXT: (1 AS REQUIRED)?DOSE; 20-40 MEQ
     Route: 042
     Dates: start: 20220216
  37. POTASSIUM CHLORIDE [Concomitant]
     Active Substance: POTASSIUM CHLORIDE
     Dosage: FREQUENCY TEXT: (1 AS REQUIRED)?(10 MG
     Route: 042
     Dates: start: 20220216
  38. ROPINIROLE [Concomitant]
     Active Substance: ROPINIROLE
     Indication: Restless legs syndrome
     Dosage: 6 MILLIGRAM
     Route: 048
     Dates: start: 20220203
  39. ROPINIROLE [Concomitant]
     Active Substance: ROPINIROLE
     Dosage: DOSE; 20-40 MEQ (1 AS REQUIRED)
     Route: 042
     Dates: start: 20220216
  40. SPIRONOLACTONE [Concomitant]
     Active Substance: SPIRONOLACTONE
     Indication: Hypervolaemia
     Route: 048
     Dates: start: 20220219
  41. RASBURICASE [Concomitant]
     Active Substance: RASBURICASE
     Indication: Prophylaxis
     Dosage: 3 MILLIGRAM
     Route: 042
     Dates: start: 20220205
  42. BUMETANIDE [Concomitant]
     Active Substance: BUMETANIDE
     Indication: Chronic kidney disease
     Route: 048
     Dates: start: 20220228
  43. FAMOTIDINE [Concomitant]
     Active Substance: FAMOTIDINE
     Indication: Gastrooesophageal reflux disease
     Route: 048
     Dates: start: 20220301
  44. ARIPIPRAZOLE [Concomitant]
     Active Substance: ARIPIPRAZOLE
     Indication: Delirium
     Route: 048
     Dates: start: 20220302
  45. NITROFURANTOIN [Concomitant]
     Active Substance: NITROFURANTOIN
     Indication: Urinary tract infection
     Route: 048
     Dates: start: 20220308
  46. DULOXETINE [Concomitant]
     Active Substance: DULOXETINE
     Indication: Anxiety
     Route: 048
     Dates: start: 20220304

REACTIONS (2)
  - Ankle fracture [Not Recovered/Not Resolved]
  - Cardiac failure congestive [Fatal]

NARRATIVE: CASE EVENT DATE: 20220303
